FAERS Safety Report 11115095 (Version 1)
Quarter: 2015Q2

REPORT INFORMATION
  Report Type: Spontaneous
  Country: US (occurrence: None)
  Receive Date: 20150514
  Receipt Date: 20150514
  Transmission Date: 20150821
  Serious: Yes (Other)
  Sender: FDA-Public Use
  Company Number: None

PATIENT
  Age: 58 Year
  Sex: Male
  Weight: 88.45 kg

DRUGS (7)
  1. ASPIRIN. [Suspect]
     Active Substance: ASPIRIN
  2. SAW PALMETTO [Suspect]
     Active Substance: SAW PALMETTO
  3. GLUCOSAMINE [Suspect]
     Active Substance: GLUCOSAMINE
  4. TOPROL XL [Suspect]
     Active Substance: METOPROLOL SUCCINATE
     Indication: HYPERTENSION
     Dosage: 1 PILL
     Route: 048
  5. TOPROL XL [Concomitant]
     Active Substance: METOPROLOL SUCCINATE
  6. CALCIUM CHANNEL BLOCKER [Concomitant]
     Active Substance: UNSPECIFIED INGREDIENT
  7. MULTI-VITAMIN [Suspect]
     Active Substance: .ALPHA.-TOCOPHEROL ACETATE, DL-\ASCORBIC ACID\CYANOCOBALAMIN\FLUORIDE ION\FOLIC ACID\NIACIN\PYRIDOXINE\RIBOFLAVIN\THIAMINE\VITAMIN A\VITAMIN D

REACTIONS (1)
  - Neuropathy peripheral [None]

NARRATIVE: CASE EVENT DATE: 20140501
